FAERS Safety Report 14975655 (Version 1)
Quarter: 2018Q2

REPORT INFORMATION
  Report Type: Spontaneous
  Country: US (occurrence: US)
  Receive Date: 20180605
  Receipt Date: 20180605
  Transmission Date: 20180711
  Serious: No
  Sender: FDA-Public Use
  Company Number: US-ROCHE-1967536

PATIENT
  Sex: Female

DRUGS (18)
  1. TURMERIC ROOT EXTRACT [Concomitant]
     Dosage: 500 MG CAPSULE TAKE 1 TABLET BY ORAL ROUTE EVERY 6 HOURS AS NEEDED
     Route: 048
     Dates: start: 20160411
  2. CELEBREX [Concomitant]
     Active Substance: CELECOXIB
     Dosage: TAKE I CAPSULE BY ORAL ROUTE IN AM EVERY DAY, MAY TAKE SECOND IN PM IF NEEDED
     Route: 065
  3. SULFASALAZINE. [Concomitant]
     Active Substance: SULFASALAZINE
     Dosage: SOO MG TABLET DELAYED RELEASE
     Route: 065
     Dates: start: 20170123
  4. TRAMADOL. [Concomitant]
     Active Substance: TRAMADOL
     Dosage: 50 MG TABLET TAKE 1 TABLET BY ORAL ROUTE EVERY DAY
     Route: 048
     Dates: start: 20161216
  5. VITAMIN C [Concomitant]
     Active Substance: ASCORBIC ACID
     Dosage: TAKE ONE CAPSULE THREE TIMES DALLY
     Route: 065
     Dates: start: 20151008
  6. SOLU-CORTEF [Concomitant]
     Active Substance: HYDROCORTISONE SODIUM SUCCINATE
     Dosage: 100 MG/2 ML ?SOLUTLON FOR INJECTION USE AS DIRECTED
     Route: 065
  7. ACTEMRA [Suspect]
     Active Substance: TOCILIZUMAB
     Indication: RHEUMATOID ARTHRITIS
     Route: 065
  8. SYNTHROID [Concomitant]
     Active Substance: LEVOTHYROXINE SODIUM
     Dosage: 75 MCG TABLET ?TEKE TABLET PO BID WITH MEALS
     Route: 065
     Dates: start: 20170123
  9. ZOFRAN [Concomitant]
     Active Substance: ONDANSETRON HYDROCHLORIDE
     Dosage: CDT 8 MG DISINTEGRATING TABLET ?TABLET DISPERSE Q8H PRN NAUSEA
     Route: 065
     Dates: start: 20150228
  10. ACETYLCARNITINE [Concomitant]
     Active Substance: ACETYLCARNITINE
     Dosage: 500 MG CAPSULE  1 DAILY
     Route: 065
     Dates: start: 20151008
  11. BACTROBAN [Concomitant]
     Active Substance: MUPIROCIN\MUPIROCIN CALCIUM
     Dosage: 2 % TOPLCAL OINTME2 % TOPLCAL OINTMENT  APPLY TO AFFECTED AREA TWICE DAILY AS NEEDED
     Route: 065
     Dates: start: 20160411
  12. COENZYME Q10 [Concomitant]
     Active Substance: UBIDECARENONE
     Dosage: 100 MG CAPSULE I DAILY
     Route: 065
     Dates: start: 20151008
  13. CYTOMEL [Concomitant]
     Active Substance: LIOTHYRONINE SODIUM
     Dosage: 5 MCG TABLET ?TAKE I TABLAT BY ORAL ROUTE 2 TIMES EVERY DAY
     Route: 048
     Dates: start: 20151008
  14. PENNSAID [Concomitant]
     Active Substance: DICLOFENAC SODIUM
     Dosage: 20 MG/GRAM/ACTUATION (2 %) ?TOPICAL SOLN IN METERED-DOSE PUMP ?APPLY 2 PUMP BY TOPICAL ROUTE 2 TIMES
     Route: 065
     Dates: start: 20160420
  15. VITAMIN D3 [Concomitant]
     Active Substance: CHOLECALCIFEROL
     Dosage: 1,000 UNIT CAPSULE?1 DALLY
     Route: 065
     Dates: start: 20150129
  16. HYDROCORTISONE. [Concomitant]
     Active Substance: HYDROCORTISONE
     Dosage: 10 MG TABLET ?TAKE ONE TABLET TWICE DALLY
     Route: 065
  17. LASIX [Concomitant]
     Active Substance: FUROSEMIDE
     Dosage: 20 MG TABLET ?TAKE 1 TABLET BY ORAL ROUTE EVERY DAY AS ?NEEDED
     Route: 048
     Dates: start: 20160411
  18. MINOCYCLINE [Concomitant]
     Active Substance: MINOCYCLINE\MINOCYCLINE HYDROCHLORIDE
     Dosage: CAUSING GI AND INEFFECTIVE DISCON.??100 MG CAPSULE ?TAKE 1 CAPSULE BY ORAL ROUTE EVE:Y 12 HOURS
     Route: 048
     Dates: start: 20161216

REACTIONS (2)
  - No adverse event [Unknown]
  - Drug ineffective [Unknown]
